FAERS Safety Report 20289398 (Version 2)
Quarter: 2022Q1

REPORT INFORMATION
  Report Type: Spontaneous
  Country: US (occurrence: US)
  Receive Date: 20220104
  Receipt Date: 20220210
  Transmission Date: 20220424
  Serious: Yes (Death)
  Sender: FDA-Public Use
  Company Number: US-TEVA-2022-US-1996831

PATIENT
  Age: 66 Year
  Sex: Male
  Weight: 54.43 kg

DRUGS (11)
  1. AMLODIPINE\VALSARTAN [Suspect]
     Active Substance: AMLODIPINE\VALSARTAN
     Indication: Hypertension
     Dosage: AMLODIPINE 10 MG /VALSARTAN 320 MG
     Route: 065
     Dates: start: 201507, end: 20180718
  2. EXFORGE [Suspect]
     Active Substance: AMLODIPINE BESYLATE\VALSARTAN
     Indication: Hypertension
     Dosage: AMLODIPINE 10 MG /VALSARTAN 320 MG
     Route: 065
     Dates: end: 201503
  3. AMLODIPINE\VALSARTAN [Suspect]
     Active Substance: AMLODIPINE\VALSARTAN
     Indication: Hypertension
     Dosage: AMLODIPINE 10 MG /VALSARTAN 320 MG
     Route: 065
     Dates: start: 201411, end: 201507
  4. AMLODIPINE\VALSARTAN [Suspect]
     Active Substance: AMLODIPINE\VALSARTAN
     Indication: Hypertension
     Dosage: AMLODIPINE 10 MG /VALSARTAN 320 MG
     Route: 065
     Dates: start: 20180718, end: 20200404
  5. ZETIA [Concomitant]
     Active Substance: EZETIMIBE
     Indication: Hyperlipidaemia
     Dosage: 10 MILLIGRAM DAILY;
     Route: 065
     Dates: start: 2010, end: 20210803
  6. CELEBREX [Concomitant]
     Active Substance: CELECOXIB
     Indication: Arthritis
     Dosage: 200 MILLIGRAM DAILY;
     Route: 065
     Dates: start: 2010, end: 20210803
  7. ANDRODERM [Concomitant]
     Active Substance: TESTOSTERONE
     Indication: Erectile dysfunction
     Route: 062
     Dates: start: 201207, end: 201612
  8. PANTOPRAZOLE [Concomitant]
     Active Substance: PANTOPRAZOLE
     Indication: Gastrooesophageal reflux disease
     Dosage: 40 MILLIGRAM DAILY;
     Route: 065
     Dates: start: 201903, end: 20210803
  9. ESOMEPRAZOLE [Concomitant]
     Active Substance: ESOMEPRAZOLE
     Indication: Gastrooesophageal reflux disease
     Dosage: 40 MILLIGRAM DAILY;
     Route: 065
     Dates: start: 201908, end: 20191003
  10. TESTOSTERONE [Concomitant]
     Active Substance: TESTOSTERONE
     Indication: Erectile dysfunction
     Dosage: 20.25MG/1.25 MG
     Route: 065
     Dates: start: 201906, end: 201909
  11. STENDRA [Concomitant]
     Active Substance: AVANAFIL
     Indication: Erectile dysfunction
     Route: 065
     Dates: start: 201906, end: 201912

REACTIONS (1)
  - Pancreatic carcinoma [Fatal]
